FAERS Safety Report 6521550-8 (Version None)
Quarter: 2009Q4

REPORT INFORMATION
  Report Type: 
  Country: None (occurrence: None)
  Receive Date: 20091230
  Receipt Date: 20091218
  Transmission Date: 20100525
  Serious: Yes (Hospitalization)
  Sender: FDA-Public Use
  Company Number: PH-PFIZER INC-2009312275

PATIENT
  Age: 66 Year
  Sex: Female
  Weight: 54 kg

DRUGS (1)
  1. SUNITINIB MALATE [Suspect]
     Indication: HEPATIC NEOPLASM MALIGNANT
     Dosage: 25 MG, 1X/DAY
     Route: 048
     Dates: start: 20091016, end: 20091218

REACTIONS (1)
  - HAEMATURIA [None]
